FAERS Safety Report 12630599 (Version 4)
Quarter: 2016Q3

REPORT INFORMATION
  Report Type: Report from Study
  Country: US (occurrence: US)
  Receive Date: 20160808
  Receipt Date: 20160916
  Transmission Date: 20161109
  Serious: Yes (Hospitalization, Other)
  Sender: FDA-Public Use
  Company Number: US-PFIZER INC-2016369140

PATIENT
  Age: 16 Year
  Sex: Male
  Weight: 59 kg

DRUGS (11)
  1. DAPTOMYCIN. [Suspect]
     Active Substance: DAPTOMYCIN
     Indication: ANTIBIOTIC THERAPY
     Dosage: 463 MG, DAILY FOR 7 DOSES
     Route: 042
     Dates: start: 20160725
  2. MYLOTARG [Suspect]
     Active Substance: GEMTUZUMAB OZOGAMICIN
     Indication: ACUTE MYELOID LEUKAEMIA RECURRENT
     Dosage: 3 MG/M2, DAY 1 AND DAY 5
     Route: 042
     Dates: start: 20160715, end: 20160719
  3. ZYLOPRIM [Concomitant]
     Active Substance: ALLOPURINOL
     Indication: BLOOD URIC ACID INCREASED
     Dosage: UNK
     Dates: start: 20160722, end: 20160729
  4. CORTEF [Suspect]
     Active Substance: HYDROCORTISONE
     Indication: ADRENAL INSUFFICIENCY
     Dosage: 2.5 MG, 2X/DAY
     Route: 048
     Dates: start: 20160725, end: 20160730
  5. MAGNESIUM OXIDE. [Concomitant]
     Active Substance: MAGNESIUM OXIDE
     Indication: BLOOD MAGNESIUM DECREASED
     Dosage: UNK
     Dates: start: 20160729
  6. SOLU-MEDROL [Suspect]
     Active Substance: METHYLPREDNISOLONE SODIUM SUCCINATE
     Indication: STEROID THERAPY
     Dosage: 40 MG, ONCE PRIOR TO INFUSION
     Route: 042
     Dates: start: 20160724, end: 20160724
  7. ZOFRAN [Concomitant]
     Active Substance: ONDANSETRON HYDROCHLORIDE
     Indication: NAUSEA
     Dosage: UNK
     Dates: start: 20151209
  8. ZOLINZA [Concomitant]
     Active Substance: VORINOSTAT
     Indication: NEOPLASM MALIGNANT
     Dosage: 400 MG, DAILY
     Route: 048
     Dates: start: 20160716, end: 20160725
  9. LEVAQUIN [Concomitant]
     Active Substance: LEVOFLOXACIN
     Indication: INFECTION
     Dosage: 500 MG, DAILY
     Route: 048
     Dates: start: 20160725, end: 20160808
  10. DIFLUCAN [Suspect]
     Active Substance: FLUCONAZOLE
     Indication: ANTIFUNGAL TREATMENT
     Dosage: 300 MG (1 TABLET), 2X/DAY FOR 21 DOSES
     Route: 048
     Dates: start: 20160725
  11. ATIVAN [Concomitant]
     Active Substance: LORAZEPAM
     Indication: ANXIETY
     Dosage: UNK
     Dates: start: 20160718

REACTIONS (9)
  - Abdominal pain [Recovering/Resolving]
  - White blood cell count decreased [Not Recovered/Not Resolved]
  - Lymphocyte count decreased [Recovering/Resolving]
  - Hyponatraemia [Recovered/Resolved]
  - Hypokalaemia [Recovering/Resolving]
  - Blood bilirubin increased [Recovering/Resolving]
  - Vomiting [Recovering/Resolving]
  - Neutrophil count decreased [Recovering/Resolving]
  - Platelet count decreased [Recovering/Resolving]

NARRATIVE: CASE EVENT DATE: 20160716
